FAERS Safety Report 7637973-X (Version None)
Quarter: 2011Q3

REPORT INFORMATION
  Report Type: 
  Country: None (occurrence: None)
  Receive Date: 20110720
  Receipt Date: 20110713
  Transmission Date: 20111222
  Serious: Yes (Life-Threatening, Hospitalization, Other)
  Sender: FDA-Public Use
  Company Number: 2010AC000255

PATIENT
  Age: 55 Year
  Sex: Male

DRUGS (20)
  1. DIGOXIN [Suspect]
     Indication: PRODUCT USED FOR UNKNOWN INDICATION
     Dosage: 0.125 MG;QOD;PO
     Route: 048
     Dates: start: 20080701, end: 20080801
  2. AMIODARONE HCL [Concomitant]
  3. AMBIEN [Concomitant]
  4. ALLOPURINOL [Concomitant]
  5. WARFARIN SODIUM [Concomitant]
  6. FUROSEMIDE [Concomitant]
  7. TEMAZEPAM [Concomitant]
  8. LISINOPRIL [Concomitant]
  9. KLOR-CON [Concomitant]
  10. XANAX [Concomitant]
  11. MILRINONE [Concomitant]
  12. DIGOXIN [Suspect]
     Indication: PRODUCT USED FOR UNKNOWN INDICATION
     Dosage: 0.125 MG;QD;PO
     Route: 048
     Dates: start: 20080601, end: 20080701
  13. VITAMIN E [Concomitant]
  14. VITAMIN K TAB [Concomitant]
  15. LEVOTHROID [Concomitant]
  16. COREG [Concomitant]
  17. DIGOXIN [Suspect]
     Indication: CARDIOMYOPATHY
     Dosage: 0.250 MG;QD;PO
     Route: 048
     Dates: start: 19950101, end: 20080401
  18. DIGOXIN [Suspect]
     Indication: PRODUCT USED FOR UNKNOWN INDICATION
     Dosage: 0.250 MG;TIW;PO
     Route: 048
     Dates: start: 20080701, end: 20080801
  19. CELEXA [Concomitant]
  20. ZYPREXA [Concomitant]

REACTIONS (35)
  - CARDIAC ARREST [None]
  - VENTRICULAR FIBRILLATION [None]
  - DYSPNOEA EXERTIONAL [None]
  - NAUSEA [None]
  - CARDIAC FAILURE ACUTE [None]
  - HYPOKALAEMIA [None]
  - CARDIOACTIVE DRUG LEVEL INCREASED [None]
  - DYSPNOEA PAROXYSMAL NOCTURNAL [None]
  - LIVER FUNCTION TEST ABNORMAL [None]
  - MULTIPLE INJURIES [None]
  - MYALGIA [None]
  - DIZZINESS [None]
  - PRESYNCOPE [None]
  - WEIGHT DECREASED [None]
  - SLEEP APNOEA SYNDROME [None]
  - INTERNATIONAL NORMALISED RATIO INCREASED [None]
  - HYDRONEPHROSIS [None]
  - PRODUCT QUALITY ISSUE [None]
  - CALCULUS URETERIC [None]
  - VENTRICULAR TACHYCARDIA [None]
  - RENAL FAILURE [None]
  - PAIN [None]
  - HEART TRANSPLANT [None]
  - MALAISE [None]
  - HYPERHIDROSIS [None]
  - MYOCARDIAL ISCHAEMIA [None]
  - FAMILY STRESS [None]
  - FATIGUE [None]
  - ANXIETY [None]
  - HYPERKALAEMIA [None]
  - ECONOMIC PROBLEM [None]
  - PALPITATIONS [None]
  - JOINT EFFUSION [None]
  - DECREASED APPETITE [None]
  - TREATMENT NONCOMPLIANCE [None]
